FAERS Safety Report 11427594 (Version 3)
Quarter: 2017Q3

REPORT INFORMATION
  Report Type: Spontaneous
  Country: US (occurrence: US)
  Receive Date: 20150827
  Receipt Date: 20170829
  Transmission Date: 20171127
  Serious: No
  Sender: FDA-Public Use
  Company Number: US-SA-2015SA088421

PATIENT
  Sex: Female

DRUGS (4)
  1. AVAPRO [Suspect]
     Active Substance: IRBESARTAN
     Indication: HYPERTENSION
     Route: 065
     Dates: start: 201506, end: 201506
  2. AVAPRO [Concomitant]
     Active Substance: IRBESARTAN
     Indication: HYPERTENSION
     Dosage: AVAPRO 300 MG BY BRISTOL MEYER SQUIBB
     Dates: start: 1980, end: 2015
  3. AVAPRO [Suspect]
     Active Substance: IRBESARTAN
     Indication: HYPERTENSION
     Route: 065
     Dates: start: 2013
  4. AVAPRO [Suspect]
     Active Substance: IRBESARTAN
     Indication: HYPERTENSION
     Route: 065
     Dates: start: 201506, end: 201506

REACTIONS (7)
  - Malaise [Unknown]
  - Asthenia [Recovered/Resolved]
  - Drug intolerance [Unknown]
  - Blood pressure increased [Unknown]
  - Adverse event [Unknown]
  - Nervousness [Recovered/Resolved]
  - Chest discomfort [Recovered/Resolved]

NARRATIVE: CASE EVENT DATE: 201506
